FAERS Safety Report 5088001-4 (Version None)
Quarter: 2006Q3

REPORT INFORMATION
  Report Type: 
  Country: None (occurrence: None)
  Receive Date: 20060823
  Receipt Date: 20060823
  Transmission Date: 20061208
  Serious: Yes (Hospitalization)
  Sender: FDA-Public Use
  Company Number: None

PATIENT
  Age: 36 Year
  Sex: Female
  Weight: 53.5244 kg

DRUGS (4)
  1. ZOLPIDEM TARTRATE [Suspect]
     Indication: SLEEP DISORDER
     Dosage: 10 MG PO QHS PRN
     Route: 048
  2. ALPRAZOLAM [Suspect]
     Indication: ANXIETY
     Dosage: 0.25 MG PO BID
     Route: 048
  3. CLONAZEPAM [Concomitant]
  4. ZOLOFT [Concomitant]

REACTIONS (5)
  - DEHYDRATION [None]
  - GASTROENTERITIS VIRAL [None]
  - MEMORY IMPAIRMENT [None]
  - MENTAL STATUS CHANGES [None]
  - SEDATION [None]
